FAERS Safety Report 8788001 (Version 2)
Quarter: 2015Q3

REPORT INFORMATION
  Report Type: Report from Study
  Country: US (occurrence: US)
  Receive Date: 20120914
  Receipt Date: 20150728
  Transmission Date: 20151125
  Serious: Yes (Death)
  Sender: FDA-Public Use
  Company Number: US-ROCHE-1126925

PATIENT
  Sex: Male
  Weight: 162 kg

DRUGS (2)
  1. AVASTIN [Suspect]
     Active Substance: BEVACIZUMAB
     Indication: MALIGNANT MELANOMA
     Route: 065
  2. NEXAVAR [Concomitant]
     Active Substance: SORAFENIB

REACTIONS (2)
  - Off label use [Unknown]
  - Death [Fatal]
